FAERS Safety Report 7405962-6 (Version None)
Quarter: 2011Q2

REPORT INFORMATION
  Report Type: 
  Country: None (occurrence: None)
  Receive Date: 20110405
  Receipt Date: 20110405
  Transmission Date: 20111010
  Serious: No
  Sender: FDA-Public Use
  Company Number: None

PATIENT
  Sex: Female

DRUGS (1)
  1. CLONIDINE [Suspect]
     Indication: HYPERTENSION
     Dosage: TTS-3 EVERY WEEK TOPICAL 060
     Route: 061
     Dates: start: 20101014

REACTIONS (2)
  - APPLICATION SITE RASH [None]
  - PRODUCT ADHESION ISSUE [None]
